FAERS Safety Report 11281910 (Version 1)
Quarter: 2015Q3

REPORT INFORMATION
  Report Type: Spontaneous
  Country: US (occurrence: US)
  Receive Date: 20150717
  Receipt Date: 20150717
  Transmission Date: 20151125
  Serious: No
  Sender: FDA-Public Use
  Company Number: US-ASTRAZENECA-2015SE66067

PATIENT
  Age: 21110 Day
  Sex: Male
  Weight: 83.9 kg

DRUGS (13)
  1. NAPROXEN. [Concomitant]
     Active Substance: NAPROXEN
     Indication: ARTHRITIS
     Route: 048
  2. FISH OIL [Concomitant]
     Active Substance: FISH OIL
     Indication: CARDIAC DISORDER
     Route: 048
  3. BYDUREON [Suspect]
     Active Substance: EXENATIDE
     Indication: TYPE 2 DIABETES MELLITUS
     Route: 065
     Dates: start: 201505
  4. ERBINFAINE [Concomitant]
     Indication: FUNGAL INFECTION
     Route: 048
  5. HYDROCHLOROTHIAZIDE. [Concomitant]
     Active Substance: HYDROCHLOROTHIAZIDE
     Indication: HYPERTENSION
     Route: 048
  6. VITAMIN D3 [Concomitant]
     Active Substance: CHOLECALCIFEROL
     Indication: VITAMIN D DEFICIENCY
     Route: 048
  7. LOSARTAN. [Concomitant]
     Active Substance: LOSARTAN
     Indication: HYPERTENSION
     Route: 048
  8. METFORMIN [Concomitant]
     Active Substance: METFORMIN HYDROCHLORIDE
     Indication: DIABETES MELLITUS
     Route: 048
  9. SIMVASTATIN. [Concomitant]
     Active Substance: SIMVASTATIN
     Indication: BLOOD CHOLESTEROL ABNORMAL
     Route: 048
  10. CINNAMON. [Concomitant]
     Active Substance: CINNAMON
     Indication: DIABETES MELLITUS
     Route: 048
  11. MULTIVITAMIN [Concomitant]
     Active Substance: VITAMINS
     Dosage: DAILY
     Route: 048
  12. MAGNESIUM [Concomitant]
     Active Substance: MAGNESIUM
     Indication: BLOOD MAGNESIUM DECREASED
     Route: 048
  13. COENZYME Q [Concomitant]
     Indication: SUPPLEMENTATION THERAPY
     Route: 048

REACTIONS (7)
  - Injection site pruritus [Recovered/Resolved with Sequelae]
  - Injection site extravasation [Unknown]
  - Injection site mass [Unknown]
  - Injection site erythema [Recovered/Resolved with Sequelae]
  - Underdose [Unknown]
  - Product quality issue [Unknown]
  - Injection site haemorrhage [Unknown]

NARRATIVE: CASE EVENT DATE: 20150706
